FAERS Safety Report 16203905 (Version 1)
Quarter: 2019Q2

REPORT INFORMATION
  Report Type: Spontaneous
  Country: JP (occurrence: JP)
  Receive Date: 20190416
  Receipt Date: 20190416
  Transmission Date: 20190711
  Serious: No
  Sender: FDA-Public Use
  Company Number: JP-ELI_LILLY_AND_COMPANY-JP201904007906

PATIENT
  Sex: Male

DRUGS (1)
  1. ZALUTIA [Suspect]
     Active Substance: TADALAFIL
     Indication: BENIGN PROSTATIC HYPERPLASIA
     Dosage: UNK
     Route: 048

REACTIONS (2)
  - Visual acuity reduced [Unknown]
  - Visual impairment [Unknown]
